FAERS Safety Report 5257366-2 (Version None)
Quarter: 2007Q1

REPORT INFORMATION
  Report Type: 
  Country: None (occurrence: None)
  Receive Date: 20070302
  Receipt Date: 20051220
  Transmission Date: 20070707
  Serious: Yes (Hospitalization)
  Sender: FDA-Public Use
  Company Number: 6029024

PATIENT
  Age: 41 Year
  Sex: Female

DRUGS (2)
  1. MIRTAZAPINE [Suspect]
  2. AMISULPRIDE (AMISULPRIDE) [Suspect]

REACTIONS (1)
  - HYPONATRAEMIA [None]
